FAERS Safety Report 22272415 (Version 1)
Quarter: 2023Q2

REPORT INFORMATION
  Report Type: Spontaneous
  Country: FR (occurrence: FR)
  Receive Date: 20230502
  Receipt Date: 20230502
  Transmission Date: 20230722
  Serious: Yes (Other)
  Sender: FDA-Public Use
  Company Number: FR-CHEPLA-2023005381

PATIENT
  Age: 74 Year
  Sex: Female

DRUGS (3)
  1. HYDROXYUREA [Suspect]
     Active Substance: HYDROXYUREA
     Indication: Leukaemia
     Dosage: 2 OR 3 YEARS ?DAILY DOSE: 1 DOSAGE FORM
  2. ASPIRIN [Concomitant]
     Active Substance: ASPIRIN
     Indication: Leukaemia
  3. IRBESARTAN [Concomitant]
     Active Substance: IRBESARTAN
     Indication: Hypertension

REACTIONS (8)
  - Fatigue [Unknown]
  - Somnolence [Unknown]
  - Muscle atrophy [Unknown]
  - Skin disorder [Unknown]
  - Nail ridging [Unknown]
  - Tooth discolouration [Unknown]
  - Decreased appetite [Unknown]
  - Fracture [Unknown]
